FAERS Safety Report 9948918 (Version 2)
Quarter: 2014Q2

REPORT INFORMATION
  Report Type: Spontaneous
  Country: US (occurrence: None)
  Receive Date: 20140122
  Receipt Date: 20140421
  Transmission Date: 20141212
  Serious: Yes (Other)
  Sender: FDA-Public Use
  Company Number: AEGR000202

PATIENT
  Age: 75 Year
  Sex: Male
  Weight: 79.4 kg

DRUGS (4)
  1. JUXTAPID [Suspect]
     Indication: TYPE IIA HYPERLIPIDAEMIA
     Route: 048
     Dates: start: 201306, end: 20131017
  2. RAMIPRIL (RAMIPRIL) [Concomitant]
  3. LOSARTAN (LOSARTAN) [Concomitant]
  4. CARVEDILOL (CARVEDILOL) [Concomitant]

REACTIONS (4)
  - Fatigue [None]
  - Back pain [None]
  - Weight decreased [None]
  - Abdominal pain upper [None]
